FAERS Safety Report 25152994 (Version 1)
Quarter: 2025Q2

REPORT INFORMATION
  Report Type: Spontaneous
  Country: US (occurrence: US)
  Receive Date: 20250403
  Receipt Date: 20250403
  Transmission Date: 20250717
  Serious: No
  Sender: SANOFI AVENTIS
  Company Number: US-SA-2025SA092550

PATIENT
  Age: 9 Year
  Sex: Male

DRUGS (3)
  1. DUPIXENT [Suspect]
     Active Substance: DUPILUMAB
     Indication: Eczema
     Dosage: 200MG
     Route: 058
     Dates: start: 20250306
  2. DUPIXENT [Suspect]
     Active Substance: DUPILUMAB
     Route: 058
     Dates: start: 20250219, end: 20250219
  3. DUPIXENT [Suspect]
     Active Substance: DUPILUMAB
     Dosage: 200
     Route: 058
     Dates: start: 20250320

REACTIONS (1)
  - Rash [Not Recovered/Not Resolved]
